FAERS Safety Report 20205186 (Version 2)
Quarter: 2021Q4

REPORT INFORMATION
  Report Type: Other
  Country: JP (occurrence: JP)
  Receive Date: 20211220
  Receipt Date: 20211222
  Transmission Date: 20220303
  Serious: Yes (Death, Other)
  Sender: FDA-Public Use
  Company Number: JP-CHUGAI-2021031325

PATIENT
  Age: 4 Decade
  Sex: Male

DRUGS (1)
  1. XELODA [Suspect]
     Active Substance: CAPECITABINE
     Indication: Abscess sweat gland
     Route: 048

REACTIONS (3)
  - Respiratory failure [Fatal]
  - Metastases to liver [Unknown]
  - Off label use [Unknown]
